FAERS Safety Report 5034796-5 (Version None)
Quarter: 2006Q2

REPORT INFORMATION
  Report Type: 
  Country: None (occurrence: None)
  Receive Date: 20060505
  Receipt Date: 20051213
  Transmission Date: 20061013
  Serious: Yes (Other)
  Sender: FDA-Public Use
  Company Number: 200514994BCC

PATIENT
  Age: 7 Year
  Sex: Female
  Weight: 23.587 kg

DRUGS (8)
  1. RID MOUSSE [Suspect]
     Indication: LICE INFESTATION
     Dosage: TOPICAL
     Route: 061
     Dates: start: 20051204
  2. RID MOUSSE [Suspect]
     Indication: LICE INFESTATION
     Dosage: TOPICAL
     Route: 061
     Dates: start: 20051211
  3. RID MOUSSE [Suspect]
     Indication: LICE INFESTATION
     Dosage: TOPICAL
     Route: 061
     Dates: start: 20051201
  4. RID MOUSSE [Suspect]
     Indication: LICE INFESTATION
     Dosage: TOPICAL
     Route: 061
     Dates: start: 20051201
  5. LEVOXINE [Concomitant]
  6. ASPIRIN [Concomitant]
  7. ALLOPURINOL [Concomitant]
  8. DIGITOXIN TAB [Concomitant]

REACTIONS (4)
  - CONVULSION [None]
  - CORNEAL REFLEX DECREASED [None]
  - DISORIENTATION [None]
  - TREMOR [None]
